FAERS Safety Report 19787944 (Version 1)
Quarter: 2021Q3

REPORT INFORMATION
  Report Type: Spontaneous
  Country: DK (occurrence: DK)
  Receive Date: 20210903
  Receipt Date: 20210903
  Transmission Date: 20211014
  Serious: Yes (Other)
  Sender: FDA-Public Use
  Company Number: NVSC2021DK190209

PATIENT
  Age: 62 Year
  Sex: Female

DRUGS (3)
  1. DONEPEZIL. [Suspect]
     Active Substance: DONEPEZIL
     Indication: DEMENTIA
     Dosage: 5 MG, QD
     Route: 065
     Dates: start: 20210601
  2. DONEPEZIL. [Suspect]
     Active Substance: DONEPEZIL
     Indication: TRISOMY 21
     Dosage: 10 MG, QD
     Route: 065
     Dates: start: 2013, end: 20210201
  3. PANODIL [Concomitant]
     Active Substance: ACETAMINOPHEN
     Indication: PAIN
     Dosage: 2 DF, Q6H
     Route: 065

REACTIONS (13)
  - Abnormal behaviour [Unknown]
  - Gait inability [Unknown]
  - Screaming [Unknown]
  - Hallucinations, mixed [Unknown]
  - Cystitis [Unknown]
  - Muscular weakness [Unknown]
  - Product use in unapproved indication [Unknown]
  - Delirium [Recovering/Resolving]
  - Fatigue [Unknown]
  - Insomnia [Recovering/Resolving]
  - Reduced facial expression [Unknown]
  - Tremor [Unknown]
  - Feeling abnormal [Unknown]
